FAERS Safety Report 12246356 (Version 1)
Quarter: 2016Q2

REPORT INFORMATION
  Report Type: Spontaneous
  Country: AU (occurrence: AU)
  Receive Date: 20160407
  Receipt Date: 20160407
  Transmission Date: 20160815
  Serious: Yes (Hospitalization)
  Sender: FDA-Public Use
  Company Number: AU-ARBOR PHARMACEUTICALS, LLC-AU-2016ARB000256

PATIENT
  Age: 48 Year
  Sex: Female

DRUGS (1)
  1. LAMOTRIGINE. [Suspect]
     Active Substance: LAMOTRIGINE
     Indication: PRODUCT USED FOR UNKNOWN INDICATION
     Dosage: UNK

REACTIONS (8)
  - Acute kidney injury [Unknown]
  - Rash erythematous [Unknown]
  - Rash [Unknown]
  - Staphylococcal sepsis [Unknown]
  - Pneumonia [Unknown]
  - Deep vein thrombosis [Unknown]
  - Toxic epidermal necrolysis [Unknown]
  - Acute respiratory distress syndrome [Unknown]
